FAERS Safety Report 4266305-2 (Version None)
Quarter: 2004Q1

REPORT INFORMATION
  Report Type: 
  Country: None (occurrence: None)
  Receive Date: 20040106
  Receipt Date: 20031218
  Transmission Date: 20041129
  Serious: Yes (Death, Hospitalization)
  Sender: FDA-Public Use
  Company Number: A-US2003-03968

PATIENT
  Age: 71 Year
  Sex: Male

DRUGS (17)
  1. TRACLEER [Suspect]
     Indication: PULMONARY HYPERTENSION
     Dosage: SEE IMAGE
     Route: 048
  2. ACTIMMUNE (INTERFERON GAMMA) [Concomitant]
  3. BACTRIM DS [Concomitant]
  4. FOSAMAX [Concomitant]
  5. IMURAN [Concomitant]
  6. K-DUR 10 [Concomitant]
  7. PRINIVIL [Concomitant]
  8. OXYGEN (OXYGEN) [Concomitant]
  9. ZANTAC [Concomitant]
  10. ASPIRIN [Concomitant]
  11. DIGOXIN [Concomitant]
  12. LASIX [Concomitant]
  13. LIPITOR [Concomitant]
  14. PREDNISONE [Concomitant]
  15. TOPROL-XL [Concomitant]
  16. I CAP (TOCOPHEROL) [Concomitant]
  17. KLOR-CON [Concomitant]

REACTIONS (27)
  - ACUTE RESPIRATORY DISTRESS SYNDROME [None]
  - ARTHRALGIA [None]
  - ASPARTATE AMINOTRANSFERASE INCREASED [None]
  - ATRIOVENTRICULAR BLOCK FIRST DEGREE [None]
  - BLOOD BILIRUBIN INCREASED [None]
  - BLOOD CREATININE INCREASED [None]
  - BLOOD PH DECREASED [None]
  - BLOOD POTASSIUM INCREASED [None]
  - BLOOD SODIUM DECREASED [None]
  - CLUBBING [None]
  - CONFUSIONAL STATE [None]
  - COR PULMONALE [None]
  - DIZZINESS [None]
  - HAEMATOCRIT DECREASED [None]
  - HEPATIC CONGESTION [None]
  - HEPATOTOXICITY [None]
  - HYPOGLYCAEMIA [None]
  - INFECTION [None]
  - INTERSTITIAL LUNG DISEASE [None]
  - LIVER FUNCTION TEST ABNORMAL [None]
  - LOSS OF CONSCIOUSNESS [None]
  - MULTI-ORGAN FAILURE [None]
  - MYALGIA [None]
  - OEDEMA PERIPHERAL [None]
  - PNEUMONITIS [None]
  - SINUS TACHYCARDIA [None]
  - VENTRICULAR HYPERTROPHY [None]
